FAERS Safety Report 15845505 (Version 1)
Quarter: 2019Q1

REPORT INFORMATION
  Report Type: Spontaneous
  Country: US (occurrence: US)
  Receive Date: 20190119
  Receipt Date: 20190119
  Transmission Date: 20190417
  Serious: Yes (Other)
  Sender: FDA-Public Use
  Company Number: US-TEVA-2019-US-998882

PATIENT

DRUGS (1)
  1. TADALAFIL TEVA [Suspect]
     Active Substance: TADALAFIL
     Dates: start: 20181205

REACTIONS (4)
  - Dysphagia [Recovered/Resolved]
  - Tongue disorder [Recovered/Resolved]
  - Product substitution issue [Unknown]
  - Dyspnoea [Recovered/Resolved]
